FAERS Safety Report 10038008 (Version 4)
Quarter: 2014Q2

REPORT INFORMATION
  Report Type: Spontaneous
  Country: US (occurrence: US)
  Receive Date: 20140326
  Receipt Date: 20140521
  Transmission Date: 20141212
  Serious: Yes (Other)
  Sender: FDA-Public Use
  Company Number: PHEH2014US004496

PATIENT
  Sex: Female

DRUGS (6)
  1. EXELON PATCH [Suspect]
     Dosage: 4.6 MG PER DAY
     Route: 062
  2. LEXAPRO [Concomitant]
     Dosage: UNK UKN, UNK
  3. ALENDRONATE SODIUM [Concomitant]
     Dosage: 70 MG, UNK
  4. VITAMIN C [Concomitant]
     Dosage: UNK UKN, UNK
  5. CALCIUM [Concomitant]
     Dosage: UNK UKN, UNK
  6. VITAMIN D3 [Concomitant]
     Dosage: UNK UKN, UNK

REACTIONS (2)
  - Dementia [Unknown]
  - Application site erythema [Unknown]
